FAERS Safety Report 5784080-7 (Version None)
Quarter: 2008Q2

REPORT INFORMATION
  Report Type: 
  Country: None (occurrence: None)
  Receive Date: 20080605
  Receipt Date: 20080331
  Transmission Date: 20081010
  Serious: No
  Sender: FDA-Public Use
  Company Number: A0718309A

PATIENT
  Age: 63 Year
  Sex: Female
  Weight: 104.5 kg

DRUGS (3)
  1. ALLI [Suspect]
     Indication: DRUG USE FOR UNKNOWN INDICATION
     Route: 048
     Dates: start: 20080307
  2. UNKNOWN DRUG [Concomitant]
     Indication: BREAST CANCER
  3. CYMBALTA [Concomitant]

REACTIONS (1)
  - CONSTIPATION [None]
